FAERS Safety Report 10045563 (Version 2)
Quarter: 2014Q1

REPORT INFORMATION
  Report Type: Spontaneous
  Country: US (occurrence: US)
  Receive Date: 20140328
  Receipt Date: 20140328
  Transmission Date: 20141002
  Serious: Yes (Other)
  Sender: FDA-Public Use
  Company Number: US-GE HEALTHCARE MEDICAL DIAGNOSTICS-OSCN-PR-0904S-0192

PATIENT
  Age: 39 Year
  Sex: Female

DRUGS (7)
  1. OMNISCAN [Suspect]
     Indication: HEADACHE
     Route: 042
     Dates: start: 20011210, end: 20011210
  2. OMNISCAN [Suspect]
     Indication: ABDOMINAL PAIN
     Route: 042
     Dates: start: 20030424, end: 20030424
  3. OMNISCAN [Suspect]
     Indication: MASS
     Route: 042
     Dates: start: 20041210, end: 20041210
  4. OMNISCAN [Suspect]
     Indication: ABSCESS
  5. MAGNEVIST [Suspect]
     Indication: MENINGITIS
     Route: 042
     Dates: start: 20031229, end: 20031229
  6. GADOLINIUM (UNSPECIFIED) [Suspect]
     Indication: PRODUCT USED FOR UNKNOWN INDICATION
     Dates: start: 20070309, end: 20070309
  7. GADOLINIUM (UNSPECIFIED) [Suspect]
     Dates: start: 20080628, end: 20080628

REACTIONS (1)
  - Nephrogenic systemic fibrosis [Not Recovered/Not Resolved]
